FAERS Safety Report 8559760 (Version 2)
Quarter: 2013Q1

REPORT INFORMATION
  Report Type: Report from Study
  Country: ES (occurrence: ES)
  Receive Date: 20120514
  Receipt Date: 20130128
  Transmission Date: 20140127
  Serious: Yes (Other)
  Sender: FDA-Public Use
  Company Number: ES-CELGENEUS-144-21880-12043243

PATIENT
  Sex: Female

DRUGS (4)
  1. REVLIMID [Suspect]
     Indication: PLASMA CELL MYELOMA
     Route: 048
     Dates: start: 200802
  2. REVLIMID [Suspect]
     Route: 048
     Dates: end: 200807
  3. DEXAMETHASONE [Suspect]
     Indication: PLASMA CELL MYELOMA
     Route: 048
     Dates: start: 200802
  4. DEXAMETHASONE [Suspect]
     Route: 048
     Dates: end: 200807

REACTIONS (1)
  - Breast cancer [Not Recovered/Not Resolved]
